FAERS Safety Report 8496475-1 (Version None)
Quarter: 2012Q3

REPORT INFORMATION
  Report Type: 
  Country: None (occurrence: None)
  Receive Date: 20120709
  Receipt Date: 20120627
  Transmission Date: 20120928
  Serious: Yes (Disabling, Other)
  Sender: FDA-Public Use
  Company Number: US-JNJFOC-20120613918

PATIENT
  Sex: Male
  Weight: 81.65 kg

DRUGS (13)
  1. OXYCODONE HCL [Suspect]
     Dosage: 10/325 MG
     Route: 065
  2. FENTANYL CITRATE [Suspect]
     Indication: PAIN
     Route: 062
  3. FENTANYL-100 [Suspect]
     Indication: PAIN
     Route: 062
  4. DURAGESIC-100 [Suspect]
     Route: 062
     Dates: start: 20120626
  5. OXYCODONE HCL [Suspect]
     Indication: PAIN
     Dosage: 10/325 MG AS NEEDED
     Route: 065
  6. ACETAMINOPHEN [Suspect]
     Indication: PAIN
     Route: 048
  7. FENTANYL-100 [Suspect]
     Indication: PAIN
     Route: 062
  8. DURAGESIC-100 [Suspect]
     Indication: PAIN
     Route: 062
  9. DURAGESIC-100 [Suspect]
     Route: 062
     Dates: start: 20000101, end: 20040101
  10. DURAGESIC-100 [Suspect]
     Route: 062
     Dates: start: 20000101
  11. VITAMINS NOS [Concomitant]
     Indication: PRODUCT USED FOR UNKNOWN INDICATION
     Route: 065
  12. ACETAMINOPHEN [Suspect]
     Route: 048
  13. ALEVE [Concomitant]
     Indication: PAIN
     Route: 048

REACTIONS (6)
  - PAIN [None]
  - FALL [None]
  - PRODUCT QUALITY ISSUE [None]
  - DIABETES MELLITUS [None]
  - HEAD INJURY [None]
  - MOBILITY DECREASED [None]
